FAERS Safety Report 26180327 (Version 1)
Quarter: 2025Q4

REPORT INFORMATION
  Report Type: Spontaneous
  Country: CA (occurrence: CA)
  Receive Date: 20251219
  Receipt Date: 20251219
  Transmission Date: 20260119
  Serious: Yes (Life-Threatening, Hospitalization)
  Sender: PFIZER
  Company Number: CA-PFIZER INC-202500245800

PATIENT
  Age: 45 Year
  Sex: Female

DRUGS (2)
  1. TESTOSTERONE CYPIONATE [Suspect]
     Active Substance: TESTOSTERONE CYPIONATE
     Indication: Menopause
     Dosage: UNK, 1 EVERY 3 MONTHS
  2. MIRENA [Concomitant]
     Active Substance: LEVONORGESTREL
     Dosage: UNK,  INSERT (EXTENDED

REACTIONS (3)
  - Cerebrovascular accident [Recovering/Resolving]
  - Transient ischaemic attack [Recovering/Resolving]
  - Off label use [Unknown]
